FAERS Safety Report 6252755-1 (Version None)
Quarter: 2009Q2

REPORT INFORMATION
  Report Type: 
  Country: None (occurrence: None)
  Receive Date: 20090629
  Receipt Date: 20090629
  Transmission Date: 20091009
  Serious: No
  Sender: FDA-Public Use
  Company Number: None

PATIENT
  Age: 44 Year
  Sex: Female
  Weight: 57.1532 kg

DRUGS (1)
  1. BUDEPRION XL 150MG TEVA, US [Suspect]
     Indication: DEPRESSION
     Dosage: ONE PILL IN THE AM- PO
     Route: 048
     Dates: start: 20090601, end: 20090618

REACTIONS (5)
  - ACTIVITIES OF DAILY LIVING IMPAIRED [None]
  - DEPRESSION [None]
  - DISEASE RECURRENCE [None]
  - DYSPHORIA [None]
  - PRODUCT SUBSTITUTION ISSUE [None]
